FAERS Safety Report 18652787 (Version 1)
Quarter: 2020Q4

REPORT INFORMATION
  Report Type: Spontaneous
  Country: BG (occurrence: BG)
  Receive Date: 20201223
  Receipt Date: 20201223
  Transmission Date: 20210114
  Serious: Yes (Other)
  Sender: FDA-Public Use
  Company Number: BG-SUN PHARMACEUTICAL INDUSTRIES LTD-2020R1-272155

PATIENT
  Age: 30 Year
  Sex: Male

DRUGS (4)
  1. RIVAROXABAN [Interacting]
     Active Substance: RIVAROXABAN
     Indication: DEEP VEIN THROMBOSIS
     Dosage: 15 MILLIGRAM, BID
     Route: 065
  2. DABIGATRAN ETEXILATE [Interacting]
     Active Substance: DABIGATRAN ETEXILATE
     Indication: DEEP VEIN THROMBOSIS
     Dosage: 150 MILLIGRAM, BID
     Route: 065
  3. VALPROIC ACID. [Suspect]
     Active Substance: VALPROIC ACID
     Indication: POST-TRAUMATIC EPILEPSY
     Dosage: UNK (100 MILLIGRAM)
     Route: 065
  4. RIVAROXABAN [Interacting]
     Active Substance: RIVAROXABAN
     Dosage: 20 MILLIGRAM, DAILY
     Route: 065

REACTIONS (2)
  - Drug ineffective [Unknown]
  - Drug interaction [Unknown]
